FAERS Safety Report 14685984 (Version 1)
Quarter: 2018Q1

REPORT INFORMATION
  Report Type: Spontaneous
  Country: US (occurrence: US)
  Receive Date: 20180326
  Receipt Date: 20180326
  Transmission Date: 20180509
  Serious: Yes (Hospitalization)
  Sender: FDA-Public Use
  Company Number: None

PATIENT
  Age: 67 Year
  Sex: Female
  Weight: 76.05 kg

DRUGS (9)
  1. TAMOXIFEN [Suspect]
     Active Substance: TAMOXIFEN
     Indication: CANCER HORMONAL THERAPY
     Route: 048
     Dates: start: 20170801, end: 20180203
  2. POTASSIUM [Concomitant]
     Active Substance: POTASSIUM
  3. MAGNESIUM [Concomitant]
     Active Substance: MAGNESIUM
  4. TURMERIC [Concomitant]
     Active Substance: HERBALS\TURMERIC
  5. ONE-A-DAY NOS [Concomitant]
     Active Substance: MINERALS\VITAMINS
  6. GLUCOSAMINE CONDROTIN [Concomitant]
  7. CALCIUM [Concomitant]
     Active Substance: CALCIUM
  8. LEVOTHROXINE [Concomitant]
     Active Substance: LEVOTHYROXINE
  9. AMLODIPIME [Concomitant]

REACTIONS (4)
  - Hypoaesthesia [None]
  - Transient ischaemic attack [None]
  - Contusion [None]
  - Muscle spasms [None]

NARRATIVE: CASE EVENT DATE: 20180207
